FAERS Safety Report 9788767 (Version 2)
Quarter: 2014Q1

REPORT INFORMATION
  Report Type: Spontaneous
  Country: US (occurrence: US)
  Receive Date: 20131230
  Receipt Date: 20140211
  Transmission Date: 20141002
  Serious: Yes (Hospitalization, Other)
  Sender: FDA-Public Use
  Company Number: US-UCBSA-106704

PATIENT
  Sex: Male
  Weight: 94.35 kg

DRUGS (10)
  1. VIMPAT [Suspect]
     Indication: COMPLEX PARTIAL SEIZURES
  2. VIMPAT [Suspect]
     Indication: GRAND MAL CONVULSION
  3. VIMPAT [Suspect]
     Indication: COMPLEX PARTIAL SEIZURES
     Dosage: STRENGTH 150 MG
     Route: 048
     Dates: start: 20131030
  4. VIMPAT [Suspect]
     Indication: GRAND MAL CONVULSION
     Dosage: STRENGTH 150 MG
     Route: 048
     Dates: start: 20131030
  5. VIMPAT [Suspect]
     Indication: COMPLEX PARTIAL SEIZURES
  6. VIMPAT [Suspect]
     Indication: GRAND MAL CONVULSION
  7. KEPPRA [Suspect]
     Indication: COMPLEX PARTIAL SEIZURES
     Dosage: STRENGTH 500 MG
     Route: 048
  8. KEPPRA [Suspect]
     Indication: COMPLEX PARTIAL SEIZURES
  9. PERCOCET [Concomitant]
     Indication: PAIN
     Dosage: 5-325 MG TWO TIMES A DAY AS NEEDED
     Route: 048
     Dates: start: 20131211
  10. LIDODERM PATCH [Concomitant]
     Indication: PAIN
     Dosage: AS NEEDED
     Dates: start: 20131211

REACTIONS (7)
  - Myelitis transverse [Not Recovered/Not Resolved]
  - Grand mal convulsion [Recovered/Resolved]
  - Thrombocytopenia [Recovering/Resolving]
  - Back pain [Recovering/Resolving]
  - Abdominal pain [Recovering/Resolving]
  - Balance disorder [Recovering/Resolving]
  - Faecal incontinence [Recovered/Resolved]
